FAERS Safety Report 8145012-X (Version None)
Quarter: 2012Q1

REPORT INFORMATION
  Report Type: 
  Country: None (occurrence: None)
  Receive Date: 20120217
  Receipt Date: 20120206
  Transmission Date: 20120608
  Serious: Yes (Other)
  Sender: FDA-Public Use
  Company Number: PHFR2011GB05424

PATIENT
  Sex: Male
  Weight: 114 kg

DRUGS (13)
  1. PEGINTERFERON ALFA-2A [Suspect]
     Dosage: 180 MG, UNK
     Route: 058
  2. NALTREXONE [Concomitant]
     Dosage: 50 MG, NOCTE
     Route: 048
     Dates: start: 20101101
  3. PEGINTERFERON ALFA-2A [Suspect]
     Indication: HEPATITIS C
     Dosage: 1 DF, QW
     Route: 058
     Dates: start: 20110715
  4. METFORMIN HCL [Concomitant]
     Dosage: 500 MG/DAY
     Route: 065
  5. SCOPOLAMINE [Concomitant]
     Route: 062
  6. CLOZARIL [Suspect]
     Indication: SCHIZOPHRENIA
     Dosage: 350 MG/DAY
     Route: 048
     Dates: start: 20100622, end: 20111223
  7. FLUOXETINE [Concomitant]
     Dosage: 40 MG, MANE
     Route: 048
     Dates: start: 20101101
  8. ZOPICLONE [Concomitant]
     Dosage: 15 MG, UNK
  9. OMEPRAZOLE [Concomitant]
     Dosage: 40 MG, MANE
     Route: 065
  10. DIAZEPAM [Concomitant]
     Dosage: 2 MG, UNK
     Route: 048
  11. DIAZEPAM [Concomitant]
     Dosage: 4 MG/DAY
     Route: 065
     Dates: start: 20101101
  12. ZOPICLONE [Concomitant]
     Dosage: 7.5 MG, NOCTE
     Route: 048
     Dates: start: 20101101
  13. ARIPIPRAZOLE [Concomitant]
     Dosage: 5 MG/DAY
     Route: 048
     Dates: start: 20110801

REACTIONS (9)
  - LEUKOPENIA [None]
  - PLATELET COUNT DECREASED [None]
  - OBESITY [None]
  - HYPERHIDROSIS [None]
  - MALAISE [None]
  - WHITE BLOOD CELL COUNT DECREASED [None]
  - NEUTROPHIL COUNT DECREASED [None]
  - OROPHARYNGEAL PAIN [None]
  - NEUTROPENIA [None]
